FAERS Safety Report 4348017-X (Version None)
Quarter: 2004Q2

REPORT INFORMATION
  Report Type: 
  Country: None (occurrence: None)
  Receive Date: 20040422
  Receipt Date: 20040406
  Transmission Date: 20050107
  Serious: Yes (Hospitalization)
  Sender: FDA-Public Use
  Company Number: DSA_24010_2004

PATIENT
  Age: 36 Year
  Sex: Male

DRUGS (7)
  1. ATIVAN [Suspect]
     Dates: start: 20040121, end: 20040121
  2. CIPRAMIL [Suspect]
     Dosage: 5000 MG ONCE PO
     Route: 048
     Dates: start: 20040121, end: 20040121
  3. CLOZARIL [Suspect]
     Dosage: 500 MG ONCE PO
     Route: 048
     Dates: start: 20040121, end: 20040121
  4. DIAZEPAM [Suspect]
     Dates: start: 20040121, end: 20040121
  5. ACETAMINOPHEN [Concomitant]
  6. TEMAZEPAM [Concomitant]
  7. GAVISCON [Concomitant]

REACTIONS (2)
  - MULTIPLE DRUG OVERDOSE [None]
  - SUICIDE ATTEMPT [None]
